FAERS Safety Report 4333402-2 (Version None)
Quarter: 2004Q1

REPORT INFORMATION
  Report Type: 
  Country: None (occurrence: None)
  Receive Date: 20040330
  Receipt Date: 20040315
  Transmission Date: 20041129
  Serious: No
  Sender: FDA-Public Use
  Company Number: M04-341-080

PATIENT
  Age: 60 Year
  Sex: Male

DRUGS (1)
  1. VELCADE [Suspect]
     Indication: MULTIPLE MYELOMA
     Dosage: 1.3 MG/M2: INTRAVENOUS (NOT OTHERWISE SPECIFIED)

REACTIONS (4)
  - CARDIOMYOPATHY [None]
  - EJECTION FRACTION DECREASED [None]
  - ERYTHEMA [None]
  - SKIN LESION [None]
